FAERS Safety Report 5322389-1 (Version None)
Quarter: 2007Q2

REPORT INFORMATION
  Report Type: 
  Country: None (occurrence: None)
  Receive Date: 20070511
  Receipt Date: 20070502
  Transmission Date: 20071010
  Serious: Yes (Other)
  Sender: FDA-Public Use
  Company Number: US-ELI_LILLY_AND_COMPANY-US200705001479

PATIENT

DRUGS (5)
  1. FORTEO [Suspect]
     Indication: OSTEOPOROSIS
     Dosage: 20 UG, UNK
     Dates: start: 20050201
  2. FORTEO [Suspect]
     Dosage: 20 UG, UNK
     Dates: start: 20060901
  3. LEVOXYL [Concomitant]
  4. IBUPROFEN [Concomitant]
  5. ACTONEL [Concomitant]

REACTIONS (2)
  - HIP FRACTURE [None]
  - N-TELOPEPTIDE URINE INCREASED [None]
